FAERS Safety Report 22032763 (Version 2)
Quarter: 2023Q1

REPORT INFORMATION
  Report Type: Spontaneous
  Country: US (occurrence: US)
  Receive Date: 20230224
  Receipt Date: 20230309
  Transmission Date: 20230417
  Serious: No
  Sender: FDA-Public Use
  Company Number: US-LUPIN PHARMACEUTICALS INC.-2023-01366

PATIENT

DRUGS (3)
  1. BLISOVI 24 FE [Suspect]
     Active Substance: ETHINYL ESTRADIOL\NORETHINDRONE ACETATE
     Indication: Menstrual disorder
     Dosage: 1 DOSAGE FORM, QD, 1 TABLET ONCE DAILY BY MOUTH
     Route: 048
  2. LEVOTHYROXINE [Concomitant]
     Active Substance: LEVOTHYROXINE
     Indication: Thyroid disorder
     Dosage: 1 DOSAGE FORM, QD
     Route: 048
  3. TALTZ [Concomitant]
     Active Substance: IXEKIZUMAB
     Indication: Psoriasis
     Dosage: 80 MILLIGRAM (SINGLE DOSE INJECTOR)(1 INJECTOR EVERY 4 WEEK)
     Route: 042

REACTIONS (2)
  - Abdominal pain upper [Unknown]
  - Product use in unapproved indication [Unknown]
